FAERS Safety Report 20367212 (Version 5)
Quarter: 2022Q1

REPORT INFORMATION
  Report Type: Report from Study
  Country: PT (occurrence: PT)
  Receive Date: 20220123
  Receipt Date: 20220209
  Transmission Date: 20220423
  Serious: Yes (Hospitalization)
  Sender: FDA-Public Use
  Company Number: PT-ABBVIE-22K-130-4243836-00

PATIENT
  Age: 81 Year
  Sex: Female

DRUGS (5)
  1. CARBIDOPA\LEVODOPA [Suspect]
     Active Substance: CARBIDOPA\LEVODOPA
     Indication: Parkinson^s disease
     Dosage: 20 MG + 5 MG MORN:7ML;MAINT:1.4ML/H;EXTRA:1ML
     Route: 050
     Dates: start: 20211214, end: 202112
  2. CARBIDOPA\LEVODOPA [Suspect]
     Active Substance: CARBIDOPA\LEVODOPA
     Dosage: 20 MG + 5 MG?MORN:5ML;MAINT:2.9ML/H;EXTRA:3ML
     Route: 050
     Dates: start: 202112, end: 20220119
  3. CARBIDOPA\LEVODOPA [Suspect]
     Active Substance: CARBIDOPA\LEVODOPA
     Dosage: 20 MG + 5 MG, MORN:5ML;MAINT:2.7ML/H;EXTRA:3ML
     Route: 050
     Dates: start: 20220119, end: 202201
  4. CARBIDOPA\LEVODOPA [Suspect]
     Active Substance: CARBIDOPA\LEVODOPA
     Dosage: 20 MG + 5 MG
     Route: 050
     Dates: start: 202201, end: 202201
  5. CARBIDOPA\LEVODOPA [Suspect]
     Active Substance: CARBIDOPA\LEVODOPA
     Dosage: MORNIN:5ML; MAINT:3.1ML/H;EXTRA:3ML
     Route: 050
     Dates: start: 202201

REACTIONS (6)
  - C-reactive protein increased [Unknown]
  - Stoma site pain [Recovered/Resolved]
  - Medical device site bruise [Recovered/Resolved]
  - Stoma site pain [Recovered/Resolved]
  - Device occlusion [Unknown]
  - Blood urine present [Recovered/Resolved]

NARRATIVE: CASE EVENT DATE: 20220117
